FAERS Safety Report 5390159-4 (Version None)
Quarter: 2007Q3

REPORT INFORMATION
  Report Type: 
  Country: None (occurrence: None)
  Receive Date: 20070716
  Receipt Date: 20070716
  Transmission Date: 20080115
  Serious: Yes (Life-Threatening, Other)
  Sender: FDA-Public Use
  Company Number: None

PATIENT
  Age: 67 Year
  Sex: Male
  Weight: 87.5442 kg

DRUGS (1)
  1. PROPAFENONE HCL [Suspect]
     Indication: ATRIAL FIBRILLATION
     Dosage: ONE TAB EVERY 8 HRS PO
     Route: 048
     Dates: start: 20070627, end: 20070703

REACTIONS (1)
  - LOSS OF CONSCIOUSNESS [None]
